FAERS Safety Report 7286303-4 (Version None)
Quarter: 2011Q1

REPORT INFORMATION
  Report Type: 
  Country: None (occurrence: None)
  Receive Date: 20110210
  Receipt Date: 20110208
  Transmission Date: 20110831
  Serious: Yes (Hospitalization, Disabling, Other)
  Sender: FDA-Public Use
  Company Number: PHHO2011GB02247

PATIENT
  Sex: Female
  Weight: 38.95 kg

DRUGS (1)
  1. GLEEVEC [Suspect]
     Indication: ACUTE LYMPHOCYTIC LEUKAEMIA
     Dosage: 300 MG, UNK
     Route: 048
     Dates: start: 20110112

REACTIONS (13)
  - OEDEMA [None]
  - OSTEOPENIA [None]
  - VOMITING [None]
  - LEUKAEMIC INFILTRATION [None]
  - FALL [None]
  - MUSCLE SPASMS [None]
  - HAEMATEMESIS [None]
  - SPINAL FRACTURE [None]
  - BACK PAIN [None]
  - GASTRITIS [None]
  - NAUSEA [None]
  - PAIN [None]
  - OSTEOPOROSIS [None]
